FAERS Safety Report 5712712-8 (Version None)
Quarter: 2008Q2

REPORT INFORMATION
  Report Type: 
  Country: None (occurrence: None)
  Receive Date: 20080421
  Receipt Date: 20080421
  Transmission Date: 20081010
  Serious: No
  Sender: FDA-Public Use
  Company Number: None

PATIENT
  Age: 11 Year
  Sex: Female
  Weight: 43.0917 kg

DRUGS (1)
  1. KENALOG-40 [Suspect]
     Indication: DERMATITIS
     Dosage: 40 MG 1 SHOT IM
     Route: 030
     Dates: start: 20070206, end: 20070206

REACTIONS (4)
  - INJECTION SITE ATROPHY [None]
  - INJECTION SITE REACTION [None]
  - PAIN OF SKIN [None]
  - SCAR [None]
